FAERS Safety Report 6753070-X (Version None)
Quarter: 2010Q2

REPORT INFORMATION
  Report Type: 
  Country: None (occurrence: None)
  Receive Date: 20100602
  Receipt Date: 20100602
  Transmission Date: 20101027
  Serious: No
  Sender: FDA-Public Use
  Company Number: None

PATIENT
  Sex: Female
  Weight: 53.0709 kg

DRUGS (1)
  1. LAMOTRIGINE [Suspect]
     Indication: BIPOLAR DISORDER
     Dates: start: 20090901

REACTIONS (4)
  - COUGH [None]
  - HYPERSENSITIVITY [None]
  - NO THERAPEUTIC RESPONSE [None]
  - POSTNASAL DRIP [None]
